FAERS Safety Report 19426529 (Version 4)
Quarter: 2021Q3

REPORT INFORMATION
  Report Type: Spontaneous
  Country: JP (occurrence: JP)
  Receive Date: 20210617
  Receipt Date: 20210929
  Transmission Date: 20211014
  Serious: Yes (Other)
  Sender: FDA-Public Use
  Company Number: NVSJ2021JP008899

PATIENT
  Age: 80 Year
  Sex: Male

DRUGS (2)
  1. BEOVU [Suspect]
     Active Substance: BROLUCIZUMAB-DBLL
     Indication: AGE-RELATED MACULAR DEGENERATION
     Dosage: 6 MG
     Route: 031
     Dates: start: 20200619, end: 20200619
  2. BEOVU [Suspect]
     Active Substance: BROLUCIZUMAB-DBLL
     Dosage: 6 MG
     Route: 031
     Dates: start: 20201009, end: 20201009

REACTIONS (4)
  - Subretinal fluid [Recovering/Resolving]
  - Age-related macular degeneration [Unknown]
  - Disease recurrence [Unknown]
  - Retinal oedema [Recovering/Resolving]

NARRATIVE: CASE EVENT DATE: 20201009
